FAERS Safety Report 15789545 (Version 1)
Quarter: 2019Q1

REPORT INFORMATION
  Report Type: Spontaneous
  Country: US (occurrence: US)
  Receive Date: 20190104
  Receipt Date: 20190104
  Transmission Date: 20190417
  Serious: Yes (Other)
  Sender: FDA-Public Use
  Company Number: US-SA-2019SA000828

PATIENT
  Sex: Female

DRUGS (2)
  1. PRALUENT [Suspect]
     Active Substance: ALIROCUMAB
     Dosage: 75 MG
     Route: 058
     Dates: start: 201806
  2. PRALUENT [Suspect]
     Active Substance: ALIROCUMAB
     Dosage: 150 UNK
     Route: 058

REACTIONS (2)
  - Dialysis [Unknown]
  - Blood cholesterol increased [Unknown]
